FAERS Safety Report 20339616 (Version 1)
Quarter: 2022Q1

REPORT INFORMATION
  Report Type: Report from Study
  Country: AR (occurrence: AR)
  Receive Date: 20220117
  Receipt Date: 20220117
  Transmission Date: 20220423
  Serious: Yes (Death)
  Sender: FDA-Public Use
  Company Number: AR-PINT-2021-Neratinib-103

PATIENT

DRUGS (7)
  1. NERLYNX [Suspect]
     Active Substance: NERATINIB
     Indication: Breast cancer metastatic
     Dosage: 1ST WEEK: 3 TBLS (120MG) ONCE DAILY
     Route: 048
     Dates: start: 20210706, end: 20210712
  2. NERLYNX [Suspect]
     Active Substance: NERATINIB
     Dosage: 2ND WEEK: 4 TBLS (160MG) ONCE DAILYPLANNED:3RD WEEK: 6 TBLS (240MG) ONCE DAILY
     Route: 048
     Dates: start: 20210713, end: 20210719
  3. NERLYNX [Suspect]
     Active Substance: NERATINIB
     Dosage: 240 MG, DAILY
     Route: 048
     Dates: start: 20210720, end: 2021
  4. NERLYNX [Suspect]
     Active Substance: NERATINIB
     Dosage: 120 MG, DAILY
     Route: 048
     Dates: start: 2021, end: 202112
  5. LOPERAMIDE [Concomitant]
     Active Substance: LOPERAMIDE
     Indication: Diarrhoea
     Dosage: 3 DF, Q8HR
     Route: 065
  6. LOPERAMIDE [Concomitant]
     Active Substance: LOPERAMIDE
     Dosage: 2 DF
     Route: 065
  7. CAPECITABINE [Concomitant]
     Active Substance: CAPECITABINE
     Indication: Product used for unknown indication
     Dosage: 3 DFS EVERY 12 HOURS DURING 14 DAYS, THEN PAUSE FOR 7 DAYS ()
     Route: 065

REACTIONS (9)
  - Disease progression [Fatal]
  - Off label use [Recovered/Resolved]
  - Influenza [Recovered/Resolved]
  - Colitis [Unknown]
  - Malaise [Unknown]
  - Retching [Unknown]
  - Decreased appetite [Unknown]
  - Diarrhoea [Unknown]
  - Drug intolerance [Recovered/Resolved]

NARRATIVE: CASE EVENT DATE: 20210706
